FAERS Safety Report 18958660 (Version 1)
Quarter: 2021Q1

REPORT INFORMATION
  Report Type: Spontaneous
  Country: BR (occurrence: BR)
  Receive Date: 20210302
  Receipt Date: 20210302
  Transmission Date: 20210420
  Serious: Yes (Other)
  Sender: FDA-Public Use
  Company Number: NVSC2021BR046051

PATIENT
  Sex: Female
  Weight: 63 kg

DRUGS (4)
  1. FULVESTRANT. [Suspect]
     Active Substance: FULVESTRANT
     Indication: BREAST CANCER METASTATIC
     Dosage: UNK, QMO
     Route: 065
  2. ADDERA D3 [Concomitant]
     Active Substance: CHOLECALCIFEROL
     Indication: VITAMIN D DEFICIENCY
     Dosage: 1 DF, QW2
     Route: 048
     Dates: start: 2018
  3. LETROZOLE. [Concomitant]
     Active Substance: LETROZOLE
     Indication: BREAST CANCER METASTATIC
     Dosage: UNK UNK, QD
     Route: 048
     Dates: end: 202011
  4. RIBOCICLIB. [Concomitant]
     Active Substance: RIBOCICLIB
     Indication: BREAST CANCER METASTATIC
     Dosage: 6 DF (6 TABLETS OF 200 MG A DAY)
     Route: 048
     Dates: start: 20210131

REACTIONS (8)
  - Hair disorder [Unknown]
  - Platelet count decreased [Unknown]
  - Metastases to liver [Unknown]
  - Nausea [Recovered/Resolved]
  - Alopecia [Recovering/Resolving]
  - Asthenia [Recovering/Resolving]
  - Illness [Recovering/Resolving]
  - Metastases to bone [Unknown]

NARRATIVE: CASE EVENT DATE: 2017
